FAERS Safety Report 10221299 (Version 1)
Quarter: 2014Q2

REPORT INFORMATION
  Report Type: Spontaneous
  Country: US (occurrence: US)
  Receive Date: 20140606
  Receipt Date: 20140606
  Transmission Date: 20141212
  Serious: No
  Sender: FDA-Public Use
  Company Number: US-GLAXOSMITHKLINE-A1071219A

PATIENT
  Age: 90 Year
  Sex: Female

DRUGS (11)
  1. BREO ELLIPTA [Suspect]
     Indication: CHRONIC OBSTRUCTIVE PULMONARY DISEASE
     Dosage: 1PUFF PER DAY
     Route: 055
     Dates: start: 20140422
  2. FELODIPINE [Concomitant]
     Indication: HYPERTENSION
  3. HYDROCODONE/APAP [Concomitant]
  4. TYLENOL [Concomitant]
  5. MECLIZINE [Concomitant]
     Indication: DIZZINESS
  6. DOXYCYCLINE [Concomitant]
  7. SIMVASTATIN [Concomitant]
  8. TRAZODONE [Concomitant]
  9. BENZONATATE [Concomitant]
  10. LEVOTHYROXINE [Concomitant]
  11. FLUTICASONE NASAL SPRAY [Concomitant]

REACTIONS (3)
  - Cough [Unknown]
  - Energy increased [Unknown]
  - Fatigue [Unknown]
